FAERS Safety Report 14382468 (Version 1)
Quarter: 2018Q1

REPORT INFORMATION
  Report Type: Spontaneous
  Country: US (occurrence: US)
  Receive Date: 20180112
  Receipt Date: 20180112
  Transmission Date: 20180509
  Serious: Yes (Death, Other)
  Sender: FDA-Public Use
  Company Number: US-SUNOVION-2018SUN000106

PATIENT
  Age: 37 Year
  Sex: Female

DRUGS (7)
  1. LATUDA [Suspect]
     Active Substance: LURASIDONE HYDROCHLORIDE
     Dosage: UNK, UNK
     Route: 048
  2. DULOXETINE. [Suspect]
     Active Substance: DULOXETINE
  3. LISINOPRIL. [Suspect]
     Active Substance: LISINOPRIL
  4. BUPROPION. [Suspect]
     Active Substance: BUPROPION
  5. NEBIVOLOL. [Suspect]
     Active Substance: NEBIVOLOL
  6. ALPRAZOLAM. [Suspect]
     Active Substance: ALPRAZOLAM
  7. ALCOHOL. [Suspect]
     Active Substance: ALCOHOL

REACTIONS (1)
  - Completed suicide [Fatal]
